FAERS Safety Report 21700095 (Version 2)
Quarter: 2022Q4

REPORT INFORMATION
  Report Type: Spontaneous
  Country: JP (occurrence: JP)
  Receive Date: 20221208
  Receipt Date: 20221229
  Transmission Date: 20230112
  Serious: Yes (Death, Hospitalization, Other)
  Sender: FDA-Public Use
  Company Number: None

PATIENT

DRUGS (22)
  1. MEPOLIZUMAB [Suspect]
     Active Substance: MEPOLIZUMAB
     Indication: Asthma
     Dosage: 100 MG
     Dates: start: 20221003
  2. PREDONINE [Suspect]
     Active Substance: PREDNISOLONE
     Dosage: 3 DF, BID AFTER BREAKFAST AND DINNER
  3. PREDONINE [Suspect]
     Active Substance: PREDNISOLONE
     Dosage: 15 MG, QD
  4. FASENRA [Concomitant]
     Active Substance: BENRALIZUMAB
     Dosage: UNK
     Dates: end: 20221002
  5. FLUTICASONE PROPIONATE\FORMOTEROL FUMARATE [Concomitant]
     Active Substance: FLUTICASONE PROPIONATE\FORMOTEROL FUMARATE
     Dosage: 4 DF, BID
     Route: 055
  6. SPIRIVA [Concomitant]
     Active Substance: TIOTROPIUM BROMIDE MONOHYDRATE
     Dosage: 2 DF, QD
     Route: 055
  7. ERYTHROCIN DRY SYRUP W20% [Concomitant]
     Dosage: 200 MG, BID
     Route: 048
  8. MUCOSOLVAN TABLET [Concomitant]
     Dosage: 15 MG, TID
     Route: 048
  9. ALESION TABLETS [Concomitant]
     Dosage: 1 DF, QD
     Route: 048
  10. TAKEPRON OD TABLET (LANSOPRAZOLE) [Concomitant]
     Dosage: 15 MG, QD
     Route: 048
  11. VILDAGLIPTIN [Concomitant]
     Active Substance: VILDAGLIPTIN
     Dosage: 50 MG, QD
     Route: 048
  12. ALFAROL [Concomitant]
     Active Substance: ALFACALCIDOL
     Dosage: 0.5 ?G, QD
     Route: 048
  13. SULFAMETHOXAZOLE\TRIMETHOPRIM [Concomitant]
     Active Substance: SULFAMETHOXAZOLE\TRIMETHOPRIM
     Dosage: 1 DF, QD
     Route: 048
  14. PARMODIA TABLET [Concomitant]
     Dosage: 0.1 MG, QD
     Route: 048
  15. PLAVIX TABLET [Concomitant]
     Dosage: 75 MG, QD
     Route: 048
  16. METGLUCO TABLETS [Concomitant]
     Dosage: 250 MG, TID
     Route: 048
  17. URSO TABLETS [Concomitant]
     Dosage: 300 MG, TID
     Route: 048
  18. BUCILLAMINE [Concomitant]
     Active Substance: BUCILLAMINE
     Dosage: 50 MG, TID
     Route: 048
  19. LYRICA [Concomitant]
     Active Substance: PREGABALIN
     Dosage: 150 MG, BID
     Route: 048
  20. CELECOX TABLETS [Concomitant]
     Dosage: 100 MG, BID
     Route: 048
  21. PURSENNID TABLETS [Concomitant]
     Dosage: 24 MG, BID
     Route: 048
  22. LOXOPROFEN NA TAPE [Concomitant]
     Dosage: 100 MG, QD
     Route: 061

REACTIONS (5)
  - Infection susceptibility increased [Fatal]
  - Cardiac failure congestive [Fatal]
  - Pneumonia [Fatal]
  - Infection [Unknown]
  - Asthma [Unknown]

NARRATIVE: CASE EVENT DATE: 20221001
